FAERS Safety Report 5608080-2 (Version None)
Quarter: 2008Q1

REPORT INFORMATION
  Report Type: 
  Country: None (occurrence: None)
  Receive Date: 20080130
  Receipt Date: 20080122
  Transmission Date: 20080703
  Serious: Yes (Other)
  Sender: FDA-Public Use
  Company Number: CN-ASTRAZENECA-2008AP00497

PATIENT
  Age: 55 Year
  Sex: Male

DRUGS (1)
  1. IRESSA [Suspect]
     Indication: LUNG NEOPLASM MALIGNANT
     Route: 048
     Dates: start: 20071201

REACTIONS (4)
  - DYSPHAGIA [None]
  - HAEMATURIA [None]
  - RASH [None]
  - TRANSAMINASES INCREASED [None]
